FAERS Safety Report 6213564-2 (Version None)
Quarter: 2009Q2

REPORT INFORMATION
  Report Type: 
  Country: None (occurrence: None)
  Receive Date: 20090603
  Receipt Date: 20090601
  Transmission Date: 20091009
  Serious: Yes (Other)
  Sender: FDA-Public Use
  Company Number: US-BAYER-200911521BCC

PATIENT
  Age: 25 Year
  Sex: Male
  Weight: 79 kg

DRUGS (1)
  1. ALEVE (CAPLET) [Suspect]
     Indication: TOOTHACHE
     Dosage: UNIT DOSE: 220 MG
     Route: 048
     Dates: start: 20090514, end: 20090515

REACTIONS (4)
  - ABDOMINAL PAIN UPPER [None]
  - FEELING HOT [None]
  - HYPERHIDROSIS [None]
  - NERVOUSNESS [None]
